FAERS Safety Report 4440761-9 (Version None)
Quarter: 2004Q3

REPORT INFORMATION
  Report Type: 
  Country: None (occurrence: None)
  Receive Date: 20040826
  Receipt Date: 20040811
  Transmission Date: 20050211
  Serious: Yes (Death)
  Sender: FDA-Public Use
  Company Number: THYM-10266

PATIENT
  Age: 53 Year
  Sex: Male
  Weight: 94.3482 kg

DRUGS (2)
  1. THYMOGLOBULIN [Suspect]
     Indication: RENAL TRANSPLANT
     Dosage: 150 MG IV
     Route: 042
     Dates: start: 20040809, end: 20040808
  2. SOLU-MEDROL [Concomitant]

REACTIONS (7)
  - ACUTE PULMONARY OEDEMA [None]
  - HYPERTENSION [None]
  - ISCHAEMIC HEPATITIS [None]
  - MEDICATION ERROR [None]
  - MYOCARDIAL INFARCTION [None]
  - PULSE ABSENT [None]
  - SEPSIS [None]
